FAERS Safety Report 10615553 (Version 1)
Quarter: 2014Q4

REPORT INFORMATION
  Report Type: Spontaneous
  Country: US (occurrence: None)
  Receive Date: 20141125
  Receipt Date: 20141125
  Transmission Date: 20150529
  Serious: Yes (Hospitalization)
  Sender: FDA-Public Use
  Company Number: None

PATIENT
  Age: 60 Year
  Sex: Male
  Weight: 62.9 kg

DRUGS (1)
  1. ERBITUX [Suspect]
     Active Substance: CETUXIMAB
     Dates: start: 20141110, end: 20141110

REACTIONS (11)
  - Neck pain [None]
  - Blood culture positive [None]
  - Confusional state [None]
  - Bacterial infection [None]
  - Sinus tachycardia [None]
  - Sepsis [None]
  - Mental status changes [None]
  - Hyponatraemia [None]
  - Cellulitis [None]
  - Pyrexia [None]
  - Hypercalcaemia [None]

NARRATIVE: CASE EVENT DATE: 20141110
